FAERS Safety Report 7435551-9 (Version None)
Quarter: 2011Q2

REPORT INFORMATION
  Report Type: 
  Country: None (occurrence: None)
  Receive Date: 20110425
  Receipt Date: 20110422
  Transmission Date: 20111010
  Serious: Yes (Hospitalization, Other)
  Sender: FDA-Public Use
  Company Number: IT-BRISTOL-MYERS SQUIBB COMPANY-15674591

PATIENT
  Age: 54 Year
  Sex: Female

DRUGS (4)
  1. IPILIMUMAB [Suspect]
     Indication: MALIGNANT MELANOMA
     Route: 042
     Dates: start: 20110304
  2. CONTRAMAL [Concomitant]
     Dates: start: 20110304
  3. PALITREX [Concomitant]
     Dates: start: 20110304
  4. DEPAKENE [Concomitant]
     Dates: start: 20110304

REACTIONS (3)
  - HYPONATRAEMIA [None]
  - HYPERBILIRUBINAEMIA [None]
  - VOMITING [None]
